FAERS Safety Report 10898611 (Version 1)
Quarter: 2015Q1

REPORT INFORMATION
  Report Type: Spontaneous
  Country: US (occurrence: None)
  Receive Date: 20150303
  Receipt Date: 20150303
  Transmission Date: 20150721
  Serious: Yes (Hospitalization)
  Sender: FDA-Public Use
  Company Number: None

PATIENT
  Age: 62 Year
  Sex: Male
  Weight: 71.9 kg

DRUGS (2)
  1. ARIPIPRAZOLE. [Suspect]
     Active Substance: ARIPIPRAZOLE
     Indication: DEPRESSION
     Dosage: 400 MG OTHER
     Route: 030
     Dates: start: 20140516, end: 20150217
  2. ARIPIPRAZOLE. [Suspect]
     Active Substance: ARIPIPRAZOLE
     Indication: SCHIZOPHRENIA, PARANOID TYPE
     Dosage: 400 MG OTHER
     Route: 030
     Dates: start: 20140516, end: 20150217

REACTIONS (12)
  - Diarrhoea haemorrhagic [None]
  - Micrococcus test positive [None]
  - Parkinsonism [None]
  - Muscle rigidity [None]
  - Pyrexia [None]
  - Catatonia [None]
  - Laboratory test interference [None]
  - Colitis [None]
  - Neuroleptic malignant syndrome [None]
  - Mental status changes [None]
  - Bacterial test positive [None]
  - Faecaloma [None]

NARRATIVE: CASE EVENT DATE: 20150217
